FAERS Safety Report 17618204 (Version 1)
Quarter: 2020Q2

REPORT INFORMATION
  Report Type: Spontaneous
  Country: US (occurrence: US)
  Receive Date: 20200402
  Receipt Date: 20200402
  Transmission Date: 20200713
  Serious: No
  Sender: FDA-Public Use
  Company Number: US-ROCHE-2461945

PATIENT
  Sex: Female

DRUGS (4)
  1. SPIRONOLACTONA [Concomitant]
     Active Substance: SPIRONOLACTONE
  2. MAGNESIUM [Concomitant]
     Active Substance: MAGNESIUM
     Route: 065
  3. ERIVEDGE [Suspect]
     Active Substance: VISMODEGIB
     Indication: SQUAMOUS CELL CARCINOMA OF SKIN
     Route: 048
  4. IMODIUM A-D [Concomitant]
     Active Substance: LOPERAMIDE HYDROCHLORIDE
     Route: 065

REACTIONS (7)
  - Asthenia [Not Recovered/Not Resolved]
  - Off label use [Unknown]
  - Abdominal pain [Not Recovered/Not Resolved]
  - Dry mouth [Not Recovered/Not Resolved]
  - Chills [Not Recovered/Not Resolved]
  - Intentional product use issue [Unknown]
  - Muscle spasms [Not Recovered/Not Resolved]
